FAERS Safety Report 4335544-4 (Version None)
Quarter: 2004Q2

REPORT INFORMATION
  Report Type: 
  Country: None (occurrence: None)
  Receive Date: 20040406
  Receipt Date: 20040325
  Transmission Date: 20050107
  Serious: Yes (Hospitalization, Other)
  Sender: FDA-Public Use
  Company Number: 001-0981-M0107956

PATIENT
  Age: 76 Year
  Sex: Female
  Weight: 56.6996 kg

DRUGS (3)
  1. LIPITOR [Suspect]
     Indication: BLOOD CHOLESTEROL INCREASED
     Dosage: 10 MG (DAILY), ORAL
     Route: 048
     Dates: end: 20031215
  2. NICOTINIC ACID [Suspect]
     Indication: BLOOD CHOLESTEROL
     Dosage: 1000 MG (DAILY)
  3. ALPRAZOLAM [Concomitant]

REACTIONS (16)
  - ACTIVITIES OF DAILY LIVING IMPAIRED [None]
  - ARTHRALGIA [None]
  - BLOOD CHOLESTEROL INCREASED [None]
  - BODY HEIGHT DECREASED [None]
  - CONSTIPATION [None]
  - DIFFICULTY IN WALKING [None]
  - DIVERTICULUM [None]
  - FEAR [None]
  - FLATULENCE [None]
  - HYPOKINESIA [None]
  - INSOMNIA [None]
  - MYALGIA [None]
  - PAIN IN EXTREMITY [None]
  - PNEUMONIA [None]
  - RECTAL HAEMORRHAGE [None]
  - WEIGHT INCREASED [None]
